FAERS Safety Report 18922122 (Version 1)
Quarter: 2021Q1

REPORT INFORMATION
  Report Type: Spontaneous
  Country: GB (occurrence: GB)
  Receive Date: 20210220
  Receipt Date: 20210220
  Transmission Date: 20210420
  Serious: No
  Sender: FDA-Public Use
  Company Number: None

PATIENT
  Age: 15 Year
  Sex: Female

DRUGS (1)
  1. TACROLIMUS .1% [Suspect]
     Active Substance: TACROLIMUS
     Indication: VITILIGO
     Dates: start: 20190701

REACTIONS (1)
  - Burning sensation [None]

NARRATIVE: CASE EVENT DATE: 20190701
